FAERS Safety Report 17908729 (Version 1)
Quarter: 2020Q2

REPORT INFORMATION
  Report Type: Spontaneous
  Country: US (occurrence: US)
  Receive Date: 20200617
  Receipt Date: 20200617
  Transmission Date: 20200714
  Serious: No
  Sender: FDA-Public Use
  Company Number: US-PFIZER INC-2020235774

PATIENT
  Age: 80 Year
  Sex: Female
  Weight: 49.89 kg

DRUGS (2)
  1. XARELTO [Concomitant]
     Active Substance: RIVAROXABAN
     Dosage: UNK
  2. IBRANCE [Suspect]
     Active Substance: PALBOCICLIB
     Indication: BREAST CANCER
     Dosage: 75 MG, 1X/DAY
     Route: 048
     Dates: start: 20200210

REACTIONS (4)
  - Back pain [Unknown]
  - Oral pain [Unknown]
  - Diarrhoea [Unknown]
  - Lymphadenopathy [Unknown]
